FAERS Safety Report 10472762 (Version 3)
Quarter: 2014Q4

REPORT INFORMATION
  Report Type: Spontaneous
  Country: CA (occurrence: CA)
  Receive Date: 20140924
  Receipt Date: 20141222
  Transmission Date: 20150528
  Serious: Yes (Disabling, Other)
  Sender: FDA-Public Use
  Company Number: CA-009507513-1408CAN010364

PATIENT
  Age: 53 Year
  Sex: Female
  Weight: 90.7 kg

DRUGS (4)
  1. PEGETRON [Suspect]
     Active Substance: PEGINTERFERON ALFA-2B\RIBAVIRIN
     Indication: HEPATITIS C
     Dosage: DOSE STRENGTH 150 MCG, CLEARCLICK PEN, WEEKLY
     Route: 058
     Dates: start: 20140721
  2. PEGETRON [Suspect]
     Active Substance: PEGINTERFERON ALFA-2B\RIBAVIRIN
     Dosage: 4 PILLS TWICE A DAY
     Route: 048
     Dates: start: 2014
  3. PEGETRON [Suspect]
     Active Substance: PEGINTERFERON ALFA-2B\RIBAVIRIN
     Dosage: 6 PILLS TWICE A DAY
     Route: 048
     Dates: start: 20140621, end: 2014
  4. AERIUS [Suspect]
     Active Substance: DESLORATADINE
     Dosage: UNK
     Route: 048

REACTIONS (44)
  - Malaise [Not Recovered/Not Resolved]
  - Dyspnoea [Not Recovered/Not Resolved]
  - Upper respiratory tract congestion [Not Recovered/Not Resolved]
  - Injection site pain [Unknown]
  - Arthralgia [Unknown]
  - Accidental exposure to product [Unknown]
  - Product quality issue [Unknown]
  - Lower respiratory tract infection [Unknown]
  - Visual impairment [Unknown]
  - Feeling abnormal [Unknown]
  - Ear pain [Not Recovered/Not Resolved]
  - Dry skin [Unknown]
  - Pain in extremity [Unknown]
  - Insomnia [Not Recovered/Not Resolved]
  - Pain [Not Recovered/Not Resolved]
  - Hair disorder [Unknown]
  - Bone pain [Unknown]
  - Chest pain [Unknown]
  - Dyspnoea [Unknown]
  - Dysphagia [Unknown]
  - Diarrhoea [Unknown]
  - Injection site irritation [Unknown]
  - Alopecia [Unknown]
  - Nausea [Unknown]
  - Injection site reaction [Unknown]
  - Bronchitis [Not Recovered/Not Resolved]
  - Asthenia [Not Recovered/Not Resolved]
  - Headache [Not Recovered/Not Resolved]
  - Rash generalised [Unknown]
  - Dry eye [Unknown]
  - Bone pain [Not Recovered/Not Resolved]
  - Chest pain [Not Recovered/Not Resolved]
  - Constipation [Unknown]
  - Sinusitis [Unknown]
  - Lethargy [Unknown]
  - Burning sensation [Unknown]
  - Pneumonia [Not Recovered/Not Resolved]
  - Injection site haemorrhage [Unknown]
  - Oropharyngeal pain [Not Recovered/Not Resolved]
  - Pain in extremity [Not Recovered/Not Resolved]
  - Pain [Unknown]
  - Product quality issue [Unknown]
  - Underdose [Unknown]
  - Vomiting [Unknown]

NARRATIVE: CASE EVENT DATE: 2014
